FAERS Safety Report 17767302 (Version 2)
Quarter: 2020Q2

REPORT INFORMATION
  Report Type: Spontaneous
  Country: US (occurrence: US)
  Receive Date: 20200511
  Receipt Date: 20200522
  Transmission Date: 20200714
  Serious: Yes (Other)
  Sender: FDA-Public Use
  Company Number: US-PFIZER INC-2020121368

PATIENT
  Age: 51 Year
  Sex: Female
  Weight: 79.38 kg

DRUGS (4)
  1. TRIMETHOPRIM. [Concomitant]
     Active Substance: TRIMETHOPRIM
     Indication: CYSTITIS
     Dosage: 100 MG, 1X/DAY(FOR 30 DAYS)
     Route: 048
  2. NITROFUR [Concomitant]
     Active Substance: NITROFURANTOIN
     Indication: CYSTITIS
     Dosage: 50 MG, 1X/DAY(FOR 30 DAYS)
     Route: 048
  3. ESTRING [Suspect]
     Active Substance: ESTRADIOL
     Indication: CYSTITIS
     Dosage: UNK(INSERTED BY HER DOCTOR)
  4. ESTRING [Suspect]
     Active Substance: ESTRADIOL
     Indication: HYSTERECTOMY

REACTIONS (5)
  - Off label use [Unknown]
  - Drug effective for unapproved indication [Unknown]
  - Vulvovaginal injury [Unknown]
  - Inflammation [Unknown]
  - Product use in unapproved indication [Unknown]
